FAERS Safety Report 6679612-0 (Version None)
Quarter: 2010Q2

REPORT INFORMATION
  Report Type: 
  Country: None (occurrence: None)
  Receive Date: 20100409
  Receipt Date: 20100329
  Transmission Date: 20101027
  Serious: No
  Sender: FDA-Public Use
  Company Number: 2010-00380

PATIENT
  Sex: Female

DRUGS (1)
  1. ZICAM NASAL PRODUCTS [Suspect]
     Dosage: QD - 1 DAY - 1 DOSE
     Dates: start: 20100324, end: 20100324

REACTIONS (1)
  - ANOSMIA [None]
